FAERS Safety Report 19253281 (Version 1)
Quarter: 2021Q2

REPORT INFORMATION
  Report Type: Other
  Country: JP (occurrence: JP)
  Receive Date: 20210513
  Receipt Date: 20210513
  Transmission Date: 20210717
  Serious: Yes (Death, Life-Threatening, Hospitalization, Other)
  Sender: FDA-Public Use
  Company Number: JP-ASPEN-GLO2021JP003328

PATIENT

DRUGS (4)
  1. AMLODIPINE [Concomitant]
     Active Substance: AMLODIPINE BESYLATE
     Indication: HYPERTENSION
     Dosage: 5 MG, QD
     Route: 065
  2. CEFEPIME [Concomitant]
     Active Substance: CEFEPIME HYDROCHLORIDE
     Indication: PNEUMONIA
     Dosage: 3 G, QD
     Route: 065
  3. DEXAMETHASONE. [Suspect]
     Active Substance: DEXAMETHASONE
     Indication: COVID-19
     Dosage: 6.6 MG, QD
     Route: 065
  4. REMDESIVIR. [Concomitant]
     Active Substance: REMDESIVIR
     Indication: COVID-19
     Dosage: 100 MG
     Route: 065

REACTIONS (8)
  - Adrenal insufficiency [Recovering/Resolving]
  - Respiratory failure [Fatal]
  - Steroid withdrawal syndrome [Fatal]
  - Hypoglycaemia [Recovering/Resolving]
  - Pulmonary oedema [Unknown]
  - Hypothalamic pituitary adrenal axis suppression [Recovering/Resolving]
  - Shock [Recovering/Resolving]
  - Haemodynamic instability [Recovering/Resolving]
